FAERS Safety Report 8357650-X (Version None)
Quarter: 2012Q2

REPORT INFORMATION
  Report Type: 
  Country: None (occurrence: None)
  Receive Date: 20120511
  Receipt Date: 20120427
  Transmission Date: 20120825
  Serious: Yes (Life-Threatening, Hospitalization)
  Sender: FDA-Public Use
  Company Number: 2012GB0163

PATIENT
  Age: 24 Year
  Sex: Male

DRUGS (1)
  1. NITISINONE (NITISINONE) [Suspect]
     Dosage: 80 MG (40 MG, 2 IN 1 D), ORAL
     Route: 048
     Dates: start: 19941205, end: 20090901

REACTIONS (2)
  - HEPATIC NEOPLASM MALIGNANT [None]
  - LIVER TRANSPLANT [None]
